FAERS Safety Report 6570215-5 (Version None)
Quarter: 2010Q1

REPORT INFORMATION
  Report Type: 
  Country: None (occurrence: None)
  Receive Date: 20100125
  Receipt Date: 20090930
  Transmission Date: 20100710
  Serious: Yes (Other)
  Sender: FDA-Public Use
  Company Number: 2008BI012234

PATIENT
  Age: 49 Year
  Sex: Female

DRUGS (2)
  1. TYSABRI [Suspect]
     Indication: MULTIPLE SCLEROSIS
     Dosage: 300 MG; QM; IV
     Route: 042
     Dates: start: 20080125, end: 20080321
  2. AVONEX [Concomitant]

REACTIONS (4)
  - EOSINOPHIL COUNT INCREASED [None]
  - HEPATIC ENZYME INCREASED [None]
  - LICHEN PLANUS [None]
  - MONOCYTE COUNT INCREASED [None]
